FAERS Safety Report 6063561-5 (Version None)
Quarter: 2009Q1

REPORT INFORMATION
  Report Type: 
  Country: None (occurrence: None)
  Receive Date: 20090129
  Receipt Date: 20090115
  Transmission Date: 20090719
  Serious: Yes (Death)
  Sender: FDA-Public Use
  Company Number: KV200900095

PATIENT
  Age: 56 Year
  Sex: Female
  Weight: 56.7 kg

DRUGS (2)
  1. MORPHINE SULFATE [Suspect]
     Indication: BREAST CANCER
     Dosage: 15 MG, ORAL
     Route: 048
     Dates: start: 20081001
  2. PHENERGAN (PROMETHAZINE) [Concomitant]

REACTIONS (5)
  - ABASIA [None]
  - ASTHENIA [None]
  - GAIT DISTURBANCE [None]
  - HAEMORRHAGE [None]
  - PRODUCT QUALITY ISSUE [None]
